FAERS Safety Report 15758543 (Version 1)
Quarter: 2018Q4

REPORT INFORMATION
  Report Type: Spontaneous
  Country: NL (occurrence: NL)
  Receive Date: 20181225
  Receipt Date: 20181225
  Transmission Date: 20190205
  Serious: Yes (Hospitalization)
  Sender: FDA-Public Use
  Company Number: PHHY2018NL193130

PATIENT

DRUGS (5)
  1. OXALIPLATIN. [Suspect]
     Active Substance: OXALIPLATIN
     Indication: COLORECTAL CANCER
     Dosage: 85 MG/M2, Q2W (ON 05/NOV/2018, MOST RECENT DOSE WAS ADMINITERED.)
     Route: 042
     Dates: start: 20181022
  2. 5-FLUOROURACIL [Suspect]
     Active Substance: FLUOROURACIL
     Indication: COLORECTAL CANCER
     Dosage: 3200 MG/M2, Q2W (ON 22/OCT/2018, MOST RECENT DOSE WAS ADMINITERED)
     Route: 042
     Dates: start: 20181022
  3. LEUCOVORIN CALCIUM. [Suspect]
     Active Substance: LEUCOVORIN CALCIUM
     Indication: COLORECTAL CANCER
     Dosage: 400 MG/M2, Q2W (ON 05/NOV/2018, MOST RECENT DOSE WAS ADMINITERED.)
     Route: 042
     Dates: start: 20181022
  4. IRINOTECAN [Suspect]
     Active Substance: IRINOTECAN
     Indication: COLORECTAL CANCER
     Dosage: 165 MG/M2, Q2W (ON 05/NOV/2018, MOST RECENT DOSE WAS ADMINITERED.)
     Route: 042
     Dates: start: 20181022
  5. BEVACIZUMAB. [Suspect]
     Active Substance: BEVACIZUMAB
     Indication: COLORECTAL CANCER
     Dosage: 5 MG/KG, Q2W (ON 05/NOV/2018, MOST RECENT DOSE WAS ADMINITERED)
     Route: 042
     Dates: start: 20181022

REACTIONS (1)
  - Duodenal ulcer [Unknown]

NARRATIVE: CASE EVENT DATE: 20181103
